FAERS Safety Report 25174866 (Version 1)
Quarter: 2025Q2

REPORT INFORMATION
  Report Type: Spontaneous
  Country: CZ (occurrence: CZ)
  Receive Date: 20250408
  Receipt Date: 20250408
  Transmission Date: 20250717
  Serious: Yes (Other)
  Sender: TAKEDA
  Company Number: CZ-002147023-NVSC2025CZ048348

PATIENT
  Sex: Female

DRUGS (22)
  1. ICLUSIG [Suspect]
     Active Substance: PONATINIB HYDROCHLORIDE
     Indication: Chronic myeloid leukaemia
     Dosage: 15 MILLIGRAM, QD
     Dates: start: 202401
  2. ICLUSIG [Suspect]
     Active Substance: PONATINIB HYDROCHLORIDE
     Dosage: 45 MILLIGRAM, QD
     Dates: start: 202402, end: 2024
  3. ICLUSIG [Suspect]
     Active Substance: PONATINIB HYDROCHLORIDE
  4. IMATINIB [Suspect]
     Active Substance: IMATINIB
     Indication: Chronic myeloid leukaemia
     Dosage: 400 MILLIGRAM, QD
     Dates: start: 200604
  5. IMATINIB [Suspect]
     Active Substance: IMATINIB
  6. IMATINIB [Suspect]
     Active Substance: IMATINIB
  7. IMATINIB [Suspect]
     Active Substance: IMATINIB
  8. IMATINIB [Suspect]
     Active Substance: IMATINIB
  9. IMATINIB [Suspect]
     Active Substance: IMATINIB
  10. IMATINIB [Suspect]
     Active Substance: IMATINIB
     Dosage: 600 MILLIGRAM, QD
     Dates: end: 201103
  11. IMATINIB [Suspect]
     Active Substance: IMATINIB
  12. IMATINIB [Suspect]
     Active Substance: IMATINIB
  13. IMATINIB [Suspect]
     Active Substance: IMATINIB
  14. NILOTINIB [Suspect]
     Active Substance: NILOTINIB
     Indication: Chronic myeloid leukaemia
     Dosage: 600 MILLIGRAM, QD
     Dates: start: 201104
  15. NILOTINIB [Suspect]
     Active Substance: NILOTINIB
  16. NILOTINIB [Suspect]
     Active Substance: NILOTINIB
     Dosage: 400 MILLIGRAM, QD
     Dates: start: 202005
  17. NILOTINIB [Suspect]
     Active Substance: NILOTINIB
     Dosage: UNK, QD
  18. NILOTINIB [Suspect]
     Active Substance: NILOTINIB
  19. DASATINIB [Suspect]
     Active Substance: DASATINIB
     Indication: Chronic myeloid leukaemia
     Dosage: 90 MILLIGRAM, QD
     Dates: start: 201306, end: 201602
  20. DASATINIB [Suspect]
     Active Substance: DASATINIB
     Dosage: 70 MILLIGRAM, QD
     Dates: start: 201605, end: 201905
  21. DASATINIB [Suspect]
     Active Substance: DASATINIB
  22. ASCIMINIB [Suspect]
     Active Substance: ASCIMINIB
     Indication: Chronic myeloid leukaemia
     Dosage: 160 MILLIGRAM, QD
     Dates: start: 202404

REACTIONS (9)
  - Peritonitis [Unknown]
  - Chronic myeloid leukaemia [Unknown]
  - Gastrointestinal tract irritation [Unknown]
  - Dermatitis allergic [Unknown]
  - Therapeutic response shortened [Unknown]
  - Condition aggravated [Unknown]
  - Nausea [Unknown]
  - Vomiting [Unknown]
  - Hypertension [Unknown]

NARRATIVE: CASE EVENT DATE: 20240201
